FAERS Safety Report 12742918 (Version 1)
Quarter: 2016Q3

REPORT INFORMATION
  Report Type: Spontaneous
  Country: US (occurrence: US)
  Receive Date: 20160914
  Receipt Date: 20160914
  Transmission Date: 20161109
  Serious: No
  Sender: FDA-Public Use
  Company Number: US-SIGMA-TAU US-2015STPI000494

PATIENT
  Age: 48 Year
  Sex: Female

DRUGS (6)
  1. ONDANSETRON [Concomitant]
     Active Substance: ONDANSETRON
  2. NATURE-THROID [Concomitant]
     Active Substance: THYROID, PORCINE
  3. ALPRAZOLAM. [Concomitant]
     Active Substance: ALPRAZOLAM
  4. PREDNISONE. [Concomitant]
     Active Substance: PREDNISONE
  5. MATULANE [Suspect]
     Active Substance: PROCARBAZINE HYDROCHLORIDE
     Indication: LYMPHOMA
     Dosage: 50 MG. TID FOR 7 DAYS, OFF FOR 3 WEEKS THEN RESUME
     Dates: start: 20150707
  6. LEVOFLOXACIN. [Concomitant]
     Active Substance: LEVOFLOXACIN

REACTIONS (2)
  - Dysphemia [Unknown]
  - Memory impairment [Unknown]

NARRATIVE: CASE EVENT DATE: 201507
